FAERS Safety Report 6532934-6 (Version None)
Quarter: 2010Q1

REPORT INFORMATION
  Report Type: 
  Country: None (occurrence: None)
  Receive Date: 20100105
  Receipt Date: 20091221
  Transmission Date: 20100710
  Serious: Yes (Other)
  Sender: FDA-Public Use
  Company Number: 2009120038

PATIENT
  Age: 58 Year
  Sex: Male
  Weight: 79.8331 kg

DRUGS (6)
  1. ASTEPRO [Suspect]
     Indication: RHINITIS ALLERGIC
     Dosage: 548 MCG (548 MCG, 1 IN 1 D), IN
     Dates: start: 20090801
  2. LIPITOR [Concomitant]
  3. NEXIUM [Concomitant]
  4. SINGULAIR [Concomitant]
  5. TRICOR [Concomitant]
  6. ASPIRIN [Concomitant]

REACTIONS (1)
  - BLOOD GLUCOSE INCREASED [None]
